FAERS Safety Report 5875076-5 (Version None)
Quarter: 2008Q3

REPORT INFORMATION
  Report Type: 
  Country: None (occurrence: None)
  Receive Date: 20080908
  Receipt Date: 20080908
  Transmission Date: 20090109
  Serious: Yes (Life-Threatening, Hospitalization)
  Sender: FDA-Public Use
  Company Number: None

PATIENT
  Age: 62 Year
  Sex: Male
  Weight: 137 kg

DRUGS (2)
  1. CETUXIMAB [Suspect]
     Indication: COLON CANCER STAGE IV
     Dosage: 1000 MG ONCE IV
     Route: 042
     Dates: start: 20080124, end: 20080124
  2. CETUXIMAB [Suspect]
     Indication: METASTASES TO LIVER
     Dosage: 1000 MG ONCE IV
     Route: 042
     Dates: start: 20080124, end: 20080124

REACTIONS (11)
  - ANAPHYLACTIC REACTION [None]
  - BLOOD PRESSURE IMMEASURABLE [None]
  - CARDIOVASCULAR DISORDER [None]
  - HEART SOUNDS ABNORMAL [None]
  - LOSS OF CONSCIOUSNESS [None]
  - NAUSEA [None]
  - PRURITUS [None]
  - PULSE PRESSURE DECREASED [None]
  - UNRESPONSIVE TO STIMULI [None]
  - URTICARIA [None]
  - VOMITING [None]
